FAERS Safety Report 13881439 (Version 1)
Quarter: 2017Q3

REPORT INFORMATION
  Report Type: Spontaneous
  Country: GB (occurrence: GB)
  Receive Date: 20170818
  Receipt Date: 20170818
  Transmission Date: 20171127
  Serious: Yes (Other)
  Sender: FDA-Public Use
  Company Number: GB-ASTRAZENECA-2014SE32164

PATIENT
  Age: 69 Year
  Sex: Female

DRUGS (11)
  1. BISACODYL. [Concomitant]
     Active Substance: BISACODYL
     Indication: CONSTIPATION
     Dates: start: 20130613
  2. MOVICOL [Concomitant]
     Active Substance: POLYETHYLENE GLYCOL 3350\POTASSIUM CHLORIDE\SODIUM BICARBONATE\SODIUM CHLORIDE
     Indication: CONSTIPATION
     Dosage: AS REQUIRED
     Dates: start: 20120702
  3. ASPIRIN. [Concomitant]
     Active Substance: ASPIRIN
     Dates: start: 20061124
  4. CETIRIZINE [Concomitant]
     Active Substance: CETIRIZINE HYDROCHLORIDE
     Dates: start: 20030529
  5. REPLEENS [Concomitant]
     Indication: GENERAL PHYSICAL HEALTH DETERIORATION
     Dosage: AS REQUIRED
     Dates: start: 20080818
  6. FASLODEX [Suspect]
     Active Substance: FULVESTRANT
     Indication: BREAST CANCER FEMALE
     Route: 030
     Dates: start: 200901
  7. AMINOPHYLLINE. [Concomitant]
     Active Substance: AMINOPHYLLINE
     Dates: start: 20131206
  8. PARACETAMOL [Concomitant]
     Active Substance: ACETAMINOPHEN
     Indication: PAIN
     Dosage: AS REQUIRED
     Route: 048
     Dates: start: 20051208
  9. OMEPRAZOLE. [Concomitant]
     Active Substance: OMEPRAZOLE
     Indication: GASTROOESOPHAGEAL REFLUX DISEASE
     Dates: start: 20090319
  10. IBUPROFEN. [Concomitant]
     Active Substance: IBUPROFEN
     Indication: PAIN
     Dosage: AS REQUIRED
     Dates: start: 20050919
  11. CALCICHEW D3 [Concomitant]
     Active Substance: CALCIUM\CHOLECALCIFEROL
     Dosage: TBD
     Dates: start: 20080818

REACTIONS (12)
  - Sciatica [Not Recovered/Not Resolved]
  - Back pain [Unknown]
  - Lipoatrophy [Not Recovered/Not Resolved]
  - Skin sensitisation [Not Recovered/Not Resolved]
  - Intentional product use issue [Unknown]
  - Madarosis [Not Recovered/Not Resolved]
  - Alopecia [Not Recovered/Not Resolved]
  - Injection site pain [Not Recovered/Not Resolved]
  - Pain in extremity [Unknown]
  - Injection site scar [Not Recovered/Not Resolved]
  - Off label use [Not Recovered/Not Resolved]
  - Metastases to lung [Unknown]
